FAERS Safety Report 7490497-5 (Version None)
Quarter: 2011Q2

REPORT INFORMATION
  Report Type: 
  Country: None (occurrence: None)
  Receive Date: 20110512
  Receipt Date: 20110418
  Transmission Date: 20111010
  Serious: Yes (Hospitalization)
  Sender: FDA-Public Use
  Company Number: 0000000000-2011-000001

PATIENT
  Age: 7 Month
  Sex: Male
  Weight: 10.4327 kg

DRUGS (2)
  1. HUMPHREYS VERY CHERRY TEETHING RELIEF PELLETS [Suspect]
     Indication: TEETHING
     Dosage: 1 PELLET ORAL ; 2 PELLETS ORAL
     Route: 048
     Dates: start: 20110410
  2. HUMPHREYS VERY CHERRY TEETHING RELIEF PELLETS [Suspect]
     Indication: TEETHING
     Dosage: 1 PELLET ORAL ; 2 PELLETS ORAL
     Route: 048
     Dates: start: 20110409

REACTIONS (2)
  - DYSKINESIA [None]
  - CONVULSION [None]
